FAERS Safety Report 4389144-0 (Version None)
Quarter: 2004Q2

REPORT INFORMATION
  Report Type: 
  Country: None (occurrence: None)
  Receive Date: 20040628
  Receipt Date: 20040621
  Transmission Date: 20050107
  Serious: Yes (Death)
  Sender: FDA-Public Use
  Company Number: 2004AP03247

PATIENT
  Age: 15 Year
  Sex: Male

DRUGS (3)
  1. XYLOCAINE [Suspect]
     Indication: ANAESTHESIA
  2. KETAMINE HCL [Concomitant]
  3. SCOLINE [Concomitant]

REACTIONS (1)
  - PROCEDURAL COMPLICATION [None]
